FAERS Safety Report 6524167-4 (Version None)
Quarter: 2009Q4

REPORT INFORMATION
  Report Type: 
  Country: None (occurrence: None)
  Receive Date: 20091231
  Receipt Date: 20091223
  Transmission Date: 20100525
  Serious: Yes (Other)
  Sender: FDA-Public Use
  Company Number: FR-ABBOTT-09P-056-0611325-00

PATIENT
  Sex: Male
  Weight: 82 kg

DRUGS (4)
  1. HUMIRA [Suspect]
     Indication: ANKYLOSING SPONDYLITIS
     Route: 058
     Dates: start: 20090109
  2. HUMIRA [Suspect]
     Indication: HLA MARKER STUDY POSITIVE
  3. BIPROFENID [Concomitant]
     Indication: ANKYLOSING SPONDYLITIS
     Dosage: FOR 4 DAYS EVERY 2 WKS 10D AFTER HUMIRA
  4. TOPALGIC [Concomitant]
     Indication: ANKYLOSING SPONDYLITIS
     Dosage: FOR 4 DAYS EVERY 2 WKS 10D AFTER HUMIRA

REACTIONS (1)
  - PSORIASIS [None]
